FAERS Safety Report 7150414-4 (Version None)
Quarter: 2010Q4

REPORT INFORMATION
  Report Type: 
  Country: None (occurrence: None)
  Receive Date: 20101210
  Receipt Date: 20101129
  Transmission Date: 20110411
  Serious: Yes (Other)
  Sender: FDA-Public Use
  Company Number: PHHY2010AU81467

PATIENT
  Age: 57 Year
  Sex: Male

DRUGS (1)
  1. ACLASTA [Suspect]
     Dosage: 5 MG
     Route: 042
     Dates: start: 20101124

REACTIONS (6)
  - COSTOCHONDRITIS [None]
  - EYE PAIN [None]
  - INFLUENZA LIKE ILLNESS [None]
  - PYREXIA [None]
  - UVEITIS [None]
  - VISION BLURRED [None]
